FAERS Safety Report 19039895 (Version 1)
Quarter: 2021Q1

REPORT INFORMATION
  Report Type: Spontaneous
  Country: US (occurrence: US)
  Receive Date: 20210323
  Receipt Date: 20210323
  Transmission Date: 20210420
  Serious: No
  Sender: FDA-Public Use
  Company Number: US-AUROBINDO-AUR-APL-2020-030381

PATIENT
  Sex: Male

DRUGS (4)
  1. CELECOXIB CAPSULES 200 MG [Suspect]
     Active Substance: CELECOXIB
     Dosage: 1 DOSAGE FORM, TWO TIMES A DAY (2 WEEKS AGO)
     Route: 065
  2. CELECOXIB CAPSULES 200 MG [Suspect]
     Active Substance: CELECOXIB
     Dosage: 1 DOSAGE FORM, ONCE A DAY (2 WEEKS AGO)
     Route: 065
  3. IBUPROFEN. [Concomitant]
     Active Substance: IBUPROFEN
     Indication: PRODUCT USED FOR UNKNOWN INDICATION
     Dosage: UNK
     Route: 065
  4. CELECOXIB CAPSULES 200 MG [Suspect]
     Active Substance: CELECOXIB
     Indication: BACK PAIN
     Dosage: 1 DOSAGE FORM, TWO TIMES A DAY (MONTHS AGO)
     Route: 065

REACTIONS (3)
  - Product substitution issue [Unknown]
  - Diarrhoea [Recovered/Resolved]
  - Bowel movement irregularity [Recovered/Resolved]
